FAERS Safety Report 6907101-4 (Version None)
Quarter: 2010Q3

REPORT INFORMATION
  Report Type: 
  Country: None (occurrence: None)
  Receive Date: 20100804
  Receipt Date: 20090128
  Transmission Date: 20110219
  Serious: No
  Sender: FDA-Public Use
  Company Number: US-PFIZER INC-2008154159

PATIENT

DRUGS (1)
  1. NARDIL [Suspect]

REACTIONS (5)
  - FLUSHING [None]
  - INTENTIONAL DRUG MISUSE [None]
  - OCULAR HYPERAEMIA [None]
  - RASH MACULAR [None]
  - SEASONAL AFFECTIVE DISORDER [None]
